FAERS Safety Report 7328859-9 (Version None)
Quarter: 2011Q1

REPORT INFORMATION
  Report Type: 
  Country: None (occurrence: None)
  Receive Date: 20110225
  Receipt Date: 20110225
  Transmission Date: 20110831
  Serious: Yes (Other)
  Sender: FDA-Public Use
  Company Number: None

PATIENT
  Age: 29 Year
  Sex: Female
  Weight: 61.6892 kg

DRUGS (1)
  1. MIRENA [Suspect]
     Indication: CONTRACEPTION
     Dates: start: 20100401, end: 20110224

REACTIONS (10)
  - MOOD SWINGS [None]
  - ARTHRALGIA [None]
  - FATIGUE [None]
  - ABDOMINAL PAIN [None]
  - HYPOAESTHESIA [None]
  - BACK PAIN [None]
  - DIZZINESS [None]
  - MENORRHAGIA [None]
  - ANXIETY [None]
  - NIGHT SWEATS [None]
